FAERS Safety Report 6577414-7 (Version None)
Quarter: 2010Q1

REPORT INFORMATION
  Report Type: 
  Country: None (occurrence: None)
  Receive Date: 20100211
  Receipt Date: 20100202
  Transmission Date: 20100710
  Serious: Yes (Hospitalization)
  Sender: FDA-Public Use
  Company Number: AT-JNJFOC-20100201126

PATIENT
  Age: 50 Year
  Sex: Male

DRUGS (7)
  1. REOPRO [Suspect]
     Indication: MYOCARDIAL INFARCTION
     Route: 042
  2. HEPARIN [Concomitant]
     Indication: MYOCARDIAL INFARCTION
     Dosage: 60 IU/KG
  3. HEPARIN [Concomitant]
  4. HEPARIN [Concomitant]
  5. ACETYLSALICYLIC ACID [Concomitant]
     Indication: MYOCARDIAL INFARCTION
  6. ACETYLSALICYLIC ACID [Concomitant]
  7. CLOPIDOGREL [Concomitant]
     Indication: MYOCARDIAL INFARCTION

REACTIONS (3)
  - PHARYNGEAL HAEMORRHAGE [None]
  - PNEUMONIA [None]
  - THROMBOSIS IN DEVICE [None]
